FAERS Safety Report 21080855 (Version 2)
Quarter: 2022Q4

REPORT INFORMATION
  Report Type: Spontaneous
  Country: US (occurrence: US)
  Receive Date: 20220714
  Receipt Date: 20221031
  Transmission Date: 20230113
  Serious: No
  Sender: FDA-Public Use
  Company Number: US-RECKITT BENCKISER HEALTHCARE INT LIMITED-RB-087857-2022

PATIENT
  Sex: Male

DRUGS (1)
  1. MUCINEX DM MAXIMUM STRENGTH [Suspect]
     Active Substance: DEXTROMETHORPHAN HYDROBROMIDE\GUAIFENESIN
     Indication: Product use in unapproved indication
     Dosage: 1200 MILLIGRAM
     Route: 048

REACTIONS (4)
  - Choking [Not Recovered/Not Resolved]
  - Wrong technique in product usage process [Unknown]
  - Product size issue [Not Recovered/Not Resolved]
  - Product complaint [Unknown]
